FAERS Safety Report 4830896-0 (Version None)
Quarter: 2005Q4

REPORT INFORMATION
  Report Type: 
  Country: None (occurrence: None)
  Receive Date: 20051117
  Receipt Date: 20050930
  Transmission Date: 20060501
  Serious: Yes (Other)
  Sender: FDA-Public Use
  Company Number: US-MERCK-0510USA01891

PATIENT
  Age: 77 Year
  Sex: Female
  Weight: 91 kg

DRUGS (8)
  1. VIOXX [Suspect]
     Indication: ARTHRITIS
     Route: 048
  2. ACTOS [Concomitant]
     Route: 065
  3. INDERAL [Concomitant]
     Route: 065
  4. INSULIN [Concomitant]
     Route: 065
  5. LASIX [Concomitant]
     Route: 065
  6. PLAVIX [Concomitant]
     Route: 065
  7. POTASSIUM (UNSPECIFIED) [Concomitant]
     Route: 065
  8. ZOLOFT [Concomitant]
     Route: 065

REACTIONS (1)
  - ISCHAEMIC STROKE [None]
